FAERS Safety Report 4323339-7 (Version None)
Quarter: 2004Q1

REPORT INFORMATION
  Report Type: 
  Country: None (occurrence: None)
  Receive Date: 20040323
  Receipt Date: 20040323
  Transmission Date: 20041129
  Serious: Yes (Other)
  Sender: FDA-Public Use
  Company Number: None

PATIENT
  Age: 88 Year
  Sex: Male
  Weight: 54.6 kg

DRUGS (9)
  1. GATIFLOXACIN [Suspect]
     Indication: URINARY TRACT INFECTION
     Dosage: 400 MG, ONCE, IV PIGGY
     Route: 042
     Dates: start: 20030806, end: 20030806
  2. ACETAMINOPHEN [Concomitant]
  3. HUMULIN R [Concomitant]
  4. FUROSEMIDE [Concomitant]
  5. ASPIRIN [Concomitant]
  6. SIMVASTATIN [Concomitant]
  7. ISOSORBIDE DINITRATE [Concomitant]
  8. NITROGLYCERIN [Concomitant]
  9. DIGOXIN [Concomitant]

REACTIONS (2)
  - INJECTION SITE RASH [None]
  - RASH [None]
